FAERS Safety Report 17998882 (Version 1)
Quarter: 2020Q3

REPORT INFORMATION
  Report Type: Spontaneous
  Country: US (occurrence: US)
  Receive Date: 20200708
  Receipt Date: 20200708
  Transmission Date: 20201103
  Serious: Yes (Other)
  Sender: FDA-Public Use
  Company Number: None

PATIENT
  Age: 33 Year
  Sex: Female
  Weight: 49.5 kg

DRUGS (3)
  1. IRON [Concomitant]
     Active Substance: IRON
  2. NUVARING [Suspect]
     Active Substance: ETHINYL ESTRADIOL\ETONOGESTREL
     Indication: ENDOMETRIOSIS
     Dosage: ?          QUANTITY:1 RING;OTHER FREQUENCY:EVERY 4 WEEKS;?
     Route: 067
     Dates: start: 20200314, end: 20200705
  3. VIT D [Concomitant]
     Active Substance: VITAMIN D NOS

REACTIONS (7)
  - Crying [None]
  - Breast pain [None]
  - Mental disorder [None]
  - Suicidal ideation [None]
  - Discomfort [None]
  - Mood altered [None]
  - Nausea [None]

NARRATIVE: CASE EVENT DATE: 20200314
